FAERS Safety Report 21188155 (Version 1)
Quarter: 2022Q3

REPORT INFORMATION
  Report Type: Spontaneous
  Country: US (occurrence: US)
  Receive Date: 20220809
  Receipt Date: 20220809
  Transmission Date: 20221027
  Serious: Yes (Other)
  Sender: FDA-Public Use
  Company Number: US-drreddys-LIT/USA/22/0153064

PATIENT
  Age: 54 Year
  Sex: Male

DRUGS (5)
  1. SIROLIMUS [Suspect]
     Active Substance: SIROLIMUS
     Indication: Hamartoma
     Route: 048
  2. SIROLIMUS [Suspect]
     Active Substance: SIROLIMUS
     Indication: Retinal disorder
  3. AFLIBERCEPT [Concomitant]
     Active Substance: AFLIBERCEPT
     Indication: Tuberous sclerosis complex
     Dosage: NEXT
  4. AFLIBERCEPT [Concomitant]
     Active Substance: AFLIBERCEPT
     Indication: Hamartoma
     Dosage: AT INTERVALS OF 4 TO 5 WEEKS
  5. AFLIBERCEPT [Concomitant]
     Active Substance: AFLIBERCEPT
     Indication: Retinal disorder

REACTIONS (2)
  - Abdominal discomfort [Unknown]
  - Off label use [Unknown]
